FAERS Safety Report 21214835 (Version 1)
Quarter: 2022Q3

REPORT INFORMATION
  Report Type: Report from Study
  Country: HN (occurrence: HN)
  Receive Date: 20220816
  Receipt Date: 20220816
  Transmission Date: 20221027
  Serious: Yes (Other)
  Sender: FDA-Public Use
  Company Number: HN-NOVARTISPH-NVSC2022HN184573

PATIENT
  Age: 75 Year
  Sex: Male

DRUGS (2)
  1. HYDROCHLOROTHIAZIDE\VALSARTAN [Suspect]
     Active Substance: HYDROCHLOROTHIAZIDE\VALSARTAN
     Indication: Product used for unknown indication
     Dosage: 160/12.5 MG (STARTED APPROXIMATLY 35 YERAS AGO AND STOPPED APPROXIMATELY 2 YEARS AGO)
     Route: 065
  2. HYDROCHLOROTHIAZIDE\VALSARTAN [Suspect]
     Active Substance: HYDROCHLOROTHIAZIDE\VALSARTAN
     Dosage: 320/12.5 MG (STARTED APPROXIMATELY 2 YEARS AGO)
     Route: 065

REACTIONS (2)
  - Cerebrovascular accident [Unknown]
  - Dysarthria [Unknown]
